FAERS Safety Report 23649210 (Version 3)
Quarter: 2024Q2

REPORT INFORMATION
  Report Type: Spontaneous
  Country: GB (occurrence: GB)
  Receive Date: 20240319
  Receipt Date: 20240424
  Transmission Date: 20240716
  Serious: Yes (Hospitalization)
  Sender: FDA-Public Use
  Company Number: GB-MYLANLABS-2024M1022683

PATIENT
  Sex: Female

DRUGS (2)
  1. CLOZARIL [Suspect]
     Active Substance: CLOZAPINE
     Indication: Schizophrenia
     Dosage: UNK
     Route: 048
     Dates: start: 20221024
  2. CLOZARIL [Suspect]
     Active Substance: CLOZAPINE
     Dosage: UNK, BID, (125 MILLIGRAM MORNING AND 300 MILLIGRAM AT NIGHT, BID (TWICE DAILY))
     Route: 048
     Dates: end: 20240416

REACTIONS (4)
  - Mental impairment [Unknown]
  - Psychotic disorder [Unknown]
  - Faecaloma [Unknown]
  - Large intestine perforation [Unknown]
